FAERS Safety Report 5428069-6 (Version None)
Quarter: 2007Q3

REPORT INFORMATION
  Report Type: 
  Country: None (occurrence: None)
  Receive Date: 20070731
  Receipt Date: 20070425
  Transmission Date: 20080115
  Serious: No
  Sender: FDA-Public Use
  Company Number: US200704005881

PATIENT
  Age: 49 Year
  Sex: Female

DRUGS (11)
  1. BYETTA [Suspect]
     Indication: TYPE 2 DIABETES MELLITUS
     Dosage: 5 UG, 2/D, SUBCUTANEOUS ; 10 UG, 2/D, SUBCUTANEOUS, 10 UG; 5 UG, 2/D SUBCUTANEOUS; 10, 2/D, SUBCUTAN
     Route: 058
     Dates: start: 20060801, end: 20061001
  2. BYETTA [Suspect]
     Indication: TYPE 2 DIABETES MELLITUS
     Dosage: 5 UG, 2/D, SUBCUTANEOUS ; 10 UG, 2/D, SUBCUTANEOUS, 10 UG; 5 UG, 2/D SUBCUTANEOUS; 10, 2/D, SUBCUTAN
     Route: 058
     Dates: start: 20061001, end: 20061201
  3. BYETTA [Suspect]
     Indication: TYPE 2 DIABETES MELLITUS
     Dosage: 5 UG, 2/D, SUBCUTANEOUS ; 10 UG, 2/D, SUBCUTANEOUS, 10 UG; 5 UG, 2/D SUBCUTANEOUS; 10, 2/D, SUBCUTAN
     Route: 058
     Dates: start: 20061201, end: 20061201
  4. BYETTA [Suspect]
     Indication: TYPE 2 DIABETES MELLITUS
     Dosage: 5 UG, 2/D, SUBCUTANEOUS ; 10 UG, 2/D, SUBCUTANEOUS, 10 UG; 5 UG, 2/D SUBCUTANEOUS; 10, 2/D, SUBCUTAN
     Route: 058
     Dates: start: 20061201, end: 20070301
  5. BYETTA [Suspect]
     Indication: TYPE 2 DIABETES MELLITUS
     Dosage: 5 UG, 2/D, SUBCUTANEOUS ; 10 UG, 2/D, SUBCUTANEOUS, 10 UG; 5 UG, 2/D SUBCUTANEOUS; 10, 2/D, SUBCUTAN
     Route: 058
     Dates: start: 20070301
  6. EXENATIDE 10 MCG PEN, DISPOSABLE DEVICE (EXENATIDE PEN (10 MCG) PEN, D [Concomitant]
  7. METFORMIN HCL [Concomitant]
  8. AMARYL [Concomitant]
  9. ALTACE [Concomitant]
  10. SPIRONOLACTONE [Concomitant]
  11. LIPITOR [Concomitant]

REACTIONS (4)
  - ABDOMINAL PAIN [None]
  - CHOLELITHIASIS [None]
  - NAUSEA [None]
  - VOMITING [None]
